FAERS Safety Report 7004155-4 (Version None)
Quarter: 2010Q3

REPORT INFORMATION
  Report Type: 
  Country: None (occurrence: None)
  Receive Date: 20100920
  Receipt Date: 20100201
  Transmission Date: 20110219
  Serious: No
  Sender: FDA-Public Use
  Company Number: US-WYE-H13404910

PATIENT
  Age: 67 Year
  Sex: Female

DRUGS (5)
  1. PRISTIQ [Suspect]
     Indication: DEPRESSION
     Route: 048
     Dates: start: 20100125
  2. PRISTIQ [Suspect]
     Indication: ANXIETY
  3. TRAZODONE HCL [Concomitant]
  4. DITROPAN [Concomitant]
  5. LORAZEPAM [Concomitant]

REACTIONS (2)
  - ANXIETY [None]
  - CONDITION AGGRAVATED [None]
